FAERS Safety Report 20998325 (Version 2)
Quarter: 2022Q3

REPORT INFORMATION
  Report Type: Spontaneous
  Country: GB (occurrence: GB)
  Receive Date: 20220623
  Receipt Date: 20220707
  Transmission Date: 20221027
  Serious: Yes (Life-Threatening, Hospitalization, Other)
  Sender: FDA-Public Use
  Company Number: GB-GILEAD-2022-0585907

PATIENT
  Age: 65 Year
  Sex: Male
  Weight: 80.5 kg

DRUGS (2)
  1. HARVONI [Suspect]
     Active Substance: LEDIPASVIR\SOFOSBUVIR
     Indication: Hepatitis C
     Dosage: 1 DOSAGE FORM, QD
     Route: 065
     Dates: start: 20220506
  2. COCODAMOL [Concomitant]
     Active Substance: ACETAMINOPHEN\CODEINE PHOSPHATE

REACTIONS (6)
  - Haemodialysis [Recovered/Resolved]
  - Dyspnoea [Unknown]
  - Pulmonary oedema [Unknown]
  - Acute kidney injury [Unknown]
  - Vasculitis [Unknown]
  - Wrong technique in product usage process [Unknown]

NARRATIVE: CASE EVENT DATE: 20220610
